FAERS Safety Report 8550591-4 (Version None)
Quarter: 2012Q3

REPORT INFORMATION
  Report Type: 
  Country: None (occurrence: None)
  Receive Date: 20120730
  Receipt Date: 20110623
  Transmission Date: 20120928
  Serious: No
  Sender: FDA-Public Use
  Company Number: US-ALLERGAN-1108525US

PATIENT
  Age: 42 Year
  Sex: Female

DRUGS (3)
  1. REFRESH CONTACT EYE DROPS [Concomitant]
     Indication: CORRECTIVE LENS USER
     Dosage: UNK
     Route: 047
  2. THICK EYE CREAM APPLIED UNDER EYES PRIOR TO APPLICATION [Suspect]
     Indication: PRODUCT USED FOR UNKNOWN INDICATION
     Dosage: UNK
  3. LATISSE [Suspect]
     Indication: GROWTH OF EYELASHES
     Dosage: 1 GTT, UNK
     Route: 061
     Dates: start: 20110201

REACTIONS (3)
  - RASH ERYTHEMATOUS [None]
  - WRONG TECHNIQUE IN DRUG USAGE PROCESS [None]
  - BLEPHARITIS [None]
